FAERS Safety Report 25216143 (Version 1)
Quarter: 2025Q2

REPORT INFORMATION
  Report Type: Spontaneous
  Country: US (occurrence: US)
  Receive Date: 20250418
  Receipt Date: 20250418
  Transmission Date: 20250717
  Serious: No
  Sender: MERCK SHARP & DOHME LLC
  Company Number: US-009507513-2269426

PATIENT
  Age: 52 Year
  Sex: Female

DRUGS (2)
  1. POSACONAZOLE [Interacting]
     Active Substance: POSACONAZOLE
     Route: 048
  2. DOCETAXEL [Interacting]
     Active Substance: DOCETAXEL
     Dosage: 37.5 MG/M2 EVERY 3 WEEKS
     Route: 065

REACTIONS (1)
  - Labelled drug-drug interaction issue [Unknown]
